FAERS Safety Report 8321640-3 (Version None)
Quarter: 2012Q2

REPORT INFORMATION
  Report Type: 
  Country: None (occurrence: None)
  Receive Date: 20120430
  Receipt Date: 20091030
  Transmission Date: 20120825
  Serious: No
  Sender: FDA-Public Use
  Company Number: US-TEVA-2009011981

PATIENT
  Sex: Male

DRUGS (3)
  1. NUVIGIL [Suspect]
     Dosage: 300 MILLIGRAM;
     Route: 048
     Dates: start: 20091027, end: 20091030
  2. PROVIGIL [Suspect]
     Dosage: 600 MILLIGRAM;
     Route: 048
     Dates: start: 20091030
  3. PROVIGIL [Suspect]
     Dosage: 600 MILLIGRAM;
     Route: 048
     Dates: end: 20091026

REACTIONS (1)
  - RASH [None]
